FAERS Safety Report 5898664-9 (Version None)
Quarter: 2008Q3

REPORT INFORMATION
  Report Type: 
  Country: None (occurrence: None)
  Receive Date: 20080925
  Receipt Date: 20080325
  Transmission Date: 20090109
  Serious: No
  Sender: FDA-Public Use
  Company Number: A0717329A

PATIENT
  Age: 51 Year
  Sex: Female

DRUGS (2)
  1. WELLBUTRIN XL [Suspect]
     Indication: DEPRESSION
     Dosage: 300MG PER DAY
     Route: 048
  2. VYTORIN [Concomitant]

REACTIONS (6)
  - AGITATION [None]
  - ALCOHOL USE [None]
  - DEPRESSION [None]
  - IRRITABILITY [None]
  - MOOD ALTERED [None]
  - TOBACCO USER [None]
